FAERS Safety Report 21383616 (Version 3)
Quarter: 2023Q2

REPORT INFORMATION
  Report Type: Report from Study
  Country: JP (occurrence: JP)
  Receive Date: 20220927
  Receipt Date: 20230501
  Transmission Date: 20230722
  Serious: Yes (Life-Threatening, Other)
  Sender: FDA-Public Use
  Company Number: JP-SA-2022SA395528

PATIENT
  Age: 9 Year
  Sex: Male
  Weight: 25 kg

DRUGS (10)
  1. ALEMTUZUMAB [Suspect]
     Active Substance: ALEMTUZUMAB
     Indication: Bone marrow conditioning regimen
     Dosage: DOSE PER ADMINISTRATION: 0.2 MG/KG
     Route: 041
     Dates: start: 20220225, end: 20220227
  2. GANCICLOVIR [Suspect]
     Active Substance: GANCICLOVIR
     Indication: Cytomegalovirus infection reactivation
     Dosage: 5 MG/KG, Q12H
     Route: 065
     Dates: start: 20220330, end: 20220508
  3. GANCICLOVIR [Suspect]
     Active Substance: GANCICLOVIR
     Dosage: THE DOSE OF GCV WAS REDUCED TO A MAINTENANCE DOSE.
     Route: 065
     Dates: start: 20220509
  4. SOLU-CORTEF [Concomitant]
     Active Substance: HYDROCORTISONE SODIUM SUCCINATE
     Indication: Prophylaxis
     Dosage: 100 MG, QD
     Route: 042
     Dates: start: 20220225, end: 20220227
  5. POLARAMINE [Concomitant]
     Active Substance: DEXCHLORPHENIRAMINE MALEATE
     Indication: Prophylaxis
     Dosage: 2.5 MG, QD
     Route: 042
     Dates: start: 20220225, end: 20220227
  6. ACETAMINOPHEN [Concomitant]
     Active Substance: ACETAMINOPHEN
     Indication: Prophylaxis
     Dosage: 250 MG, QD
     Route: 042
     Dates: start: 20220225, end: 20220227
  7. ACYCLOVIR [Concomitant]
     Active Substance: ACYCLOVIR
     Indication: Infection prophylaxis
     Dosage: 125 MG, BID
     Route: 042
     Dates: start: 20220224, end: 20220330
  8. VFEND [Concomitant]
     Active Substance: VORICONAZOLE
     Indication: Infection prophylaxis
     Dosage: 100 MG, BID
     Route: 048
  9. SULFAMETHOXAZOLE\TRIMETHOPRIM [Concomitant]
     Active Substance: SULFAMETHOXAZOLE\TRIMETHOPRIM
     Indication: Infection prophylaxis
     Dosage: 0.7 G, BID
     Route: 048
  10. PREVYMIS [Concomitant]
     Active Substance: LETERMOVIR
     Indication: Infection prophylaxis
     Dosage: 240 MG, QD
     Route: 048
     Dates: start: 20220309, end: 20220329

REACTIONS (3)
  - Engraft failure [Recovered/Resolved]
  - Cytomegalovirus infection reactivation [Recovered/Resolved]
  - Pyrexia [Recovered/Resolved]

NARRATIVE: CASE EVENT DATE: 20220225
